FAERS Safety Report 16247126 (Version 5)
Quarter: 2020Q2

REPORT INFORMATION
  Report Type: Report from Study
  Country: None (occurrence: NL)
  Receive Date: 20190427
  Receipt Date: 20200622
  Transmission Date: 20200713
  Serious: Yes (Other)
  Sender: FDA-Public Use
  Company Number: NL-ABBVIE-19S-114-2755287-00

PATIENT
  Age: 71 Year
  Sex: Male

DRUGS (4)
  1. VITAMIN B6 [Concomitant]
     Active Substance: PYRIDOXINE HYDROCHLORIDE
     Indication: PRODUCT USED FOR UNKNOWN INDICATION
  2. DUODOPA [Suspect]
     Active Substance: CARBIDOPA\LEVODOPA
     Indication: PARKINSON^S DISEASE
     Dosage: MD 8,5ML CDD 6,6ML/U CDN 3ML/U ED 2ML.
     Route: 050
     Dates: start: 20181009
  3. DUODOPA [Suspect]
     Active Substance: CARBIDOPA\LEVODOPA
     Route: 050
  4. DUODOPA [Suspect]
     Active Substance: CARBIDOPA\LEVODOPA
     Dosage: MD: 9.5 ; CDD: 6.6 EDD: 1.5 ; CDN: EDN: 2.0
     Route: 050

REACTIONS (41)
  - Blindness [Not Recovered/Not Resolved]
  - Overdose [Not Recovered/Not Resolved]
  - Oedema peripheral [Unknown]
  - Paraesthesia [Unknown]
  - Pain [Recovered/Resolved]
  - Taste disorder [Not Recovered/Not Resolved]
  - Post procedural complication [Unknown]
  - Device expulsion [Unknown]
  - Obsessive-compulsive disorder [Not Recovered/Not Resolved]
  - Medical device site pain [Not Recovered/Not Resolved]
  - Pollakiuria [Recovered/Resolved]
  - Hallucination [Recovered/Resolved]
  - Dyskinesia [Unknown]
  - Hallucination, olfactory [Recovering/Resolving]
  - Hypogeusia [Recovering/Resolving]
  - Fibroma [Unknown]
  - On and off phenomenon [Unknown]
  - Loss of consciousness [Recovered/Resolved]
  - Musculoskeletal stiffness [Not Recovered/Not Resolved]
  - Abnormal dreams [Not Recovered/Not Resolved]
  - Stoma site irritation [Recovered/Resolved]
  - Medical device site irritation [Not Recovered/Not Resolved]
  - Device use error [Not Recovered/Not Resolved]
  - Hyperkinesia [Unknown]
  - Musculoskeletal stiffness [Unknown]
  - Parosmia [Not Recovered/Not Resolved]
  - Hypoaesthesia [Unknown]
  - Abnormal faeces [Recovered/Resolved]
  - Medical device site pain [Recovered/Resolved]
  - Vision blurred [Not Recovered/Not Resolved]
  - Parkinson^s disease [Not Recovered/Not Resolved]
  - Stoma site discharge [Unknown]
  - Gait inability [Not Recovered/Not Resolved]
  - Device dislocation [Not Recovered/Not Resolved]
  - Stoma complication [Recovered/Resolved]
  - Pain in extremity [Unknown]
  - Embedded device [Recovered/Resolved]
  - Delusion [Recovered/Resolved]
  - Delusion [Not Recovered/Not Resolved]
  - Weight decreased [Recovered/Resolved]
  - Abdominal distension [Not Recovered/Not Resolved]

NARRATIVE: CASE EVENT DATE: 201902
